FAERS Safety Report 8687679 (Version 3)
Quarter: 2012Q4

REPORT INFORMATION
  Report Type: 
  Country: IE (occurrence: IE)
  Receive Date: 20120727
  Receipt Date: 20120920
  Transmission Date: 20130627
  Serious: Yes (Other)
  Sender: FDA-Public Use
  Company Number: PHFR2012IE004168

PATIENT
  Age: 36 Year
  Sex: Female
  Weight: 83 kg

DRUGS (3)
  1. CLOZARIL [Suspect]
     Indication: SCHIZOPHRENIA
     Dosage: 300 mg, daily
     Route: 048
     Dates: start: 20120410, end: 20120711
  2. CLOZARIL [Suspect]
     Dosage: 300 mg, daily (100 mg in the morning and 200 mg at night)
     Route: 048
     Dates: start: 20120722, end: 20120725
  3. CLOZARIL [Suspect]
     Dosage: 25 mg, QD

REACTIONS (5)
  - Musculoskeletal stiffness [Recovered/Resolved]
  - Sedation [Not Recovered/Not Resolved]
  - Fatigue [Not Recovered/Not Resolved]
  - Constipation [Recovered/Resolved]
  - Movement disorder [Unknown]
